FAERS Safety Report 25017194 (Version 2)
Quarter: 2025Q3

REPORT INFORMATION
  Report Type: Spontaneous
  Country: US (occurrence: US)
  Receive Date: 20250227
  Receipt Date: 20250710
  Transmission Date: 20251021
  Serious: Yes (Other)
  Sender: Unknown Manufacturer
  Company Number: US-862174955-ML2025-00920

PATIENT
  Age: 83 Year
  Sex: Female
  Weight: 81 kg

DRUGS (2)
  1. METHENAMINE HIPPURATE [Suspect]
     Active Substance: METHENAMINE HIPPURATE
     Indication: Cystitis
     Dates: start: 2024, end: 20250215
  2. ARMOUR THYROID [Concomitant]
     Active Substance: THYROID, PORCINE
     Indication: Autoimmune thyroiditis

REACTIONS (4)
  - Sepsis [Unknown]
  - Hypertension [Not Recovered/Not Resolved]
  - Blood pressure fluctuation [Not Recovered/Not Resolved]
  - Pruritus [Unknown]

NARRATIVE: CASE EVENT DATE: 20240101
